FAERS Safety Report 16031543 (Version 1)
Quarter: 2019Q1

REPORT INFORMATION
  Report Type: Spontaneous
  Country: US (occurrence: US)
  Receive Date: 20190304
  Receipt Date: 20190304
  Transmission Date: 20190418
  Serious: No
  Sender: FDA-Public Use
  Company Number: US-IMPAX LABORATORIES, LLC-2018-IPXL-01694

PATIENT
  Sex: Male
  Weight: 91 kg

DRUGS (3)
  1. RYTARY [Suspect]
     Active Substance: CARBIDOPA\LEVODOPA
     Dosage: 36.25/145 MG, THREE CAPSULES DAILY AND 48.75/195 MG, FIVE CAPSULES DAILY
     Route: 048
     Dates: start: 201805, end: 201805
  2. RYTARY [Suspect]
     Active Substance: CARBIDOPA\LEVODOPA
     Indication: PARKINSON^S DISEASE
     Dosage: 1CAP48.75/195MG 7AM, 2CAP48.75/195MG NOON, 1CAP36.25/145MG+1CAP48.75/195MG 5PM, 1CAP 36.25/145MG10PM
     Route: 048
     Dates: start: 201805, end: 201805
  3. NEUPRO [Concomitant]
     Active Substance: ROTIGOTINE
     Indication: PARKINSON^S DISEASE
     Dosage: UNK
     Route: 062

REACTIONS (4)
  - Malaise [Unknown]
  - Drug effect variable [Unknown]
  - Therapeutic response shortened [Unknown]
  - Fatigue [Recovered/Resolved]

NARRATIVE: CASE EVENT DATE: 2018
